FAERS Safety Report 5723951-4 (Version None)
Quarter: 2008Q2

REPORT INFORMATION
  Report Type: 
  Country: None (occurrence: None)
  Receive Date: 20080430
  Receipt Date: 20080425
  Transmission Date: 20081010
  Serious: Yes (Hospitalization)
  Sender: FDA-Public Use
  Company Number: US-SANOFI-SYNTHELABO-F01200800678

PATIENT
  Sex: Female

DRUGS (5)
  1. PREDNISONE [Suspect]
     Dosage: UNK
  2. BEVACIZUMAB [Suspect]
     Route: 042
     Dates: start: 20050426
  3. LEUCOVORIN CALCIUM [Suspect]
     Route: 042
     Dates: start: 20050426
  4. FLUOROURACIL [Suspect]
     Dosage: 400 MG/M2 IV BOLUS AND 2400 MG/M2 IV CONTINUOUS INFUSION FOR 46 HOURS, Q2W
     Route: 042
     Dates: start: 20050426
  5. ELOXATIN [Suspect]
     Indication: COLORECTAL CANCER
     Route: 042
     Dates: start: 20050426

REACTIONS (1)
  - DUODENAL ULCER [None]
